FAERS Safety Report 7298327-1 (Version None)
Quarter: 2011Q1

REPORT INFORMATION
  Report Type: 
  Country: None (occurrence: None)
  Receive Date: 20110217
  Receipt Date: 20100524
  Transmission Date: 20110831
  Serious: No
  Sender: FDA-Public Use
  Company Number: US-PFIZER INC-2009191819

PATIENT
  Sex: Female
  Weight: 90.703 kg

DRUGS (3)
  1. XALATAN [Suspect]
     Indication: GLAUCOMA
     Dosage: 1 GTT, DAILY
     Route: 047
     Dates: start: 20090101
  2. AMLODIPINE [Concomitant]
     Indication: HYPERTENSION
     Dosage: 10 MG, UNK
  3. ALENDRONIC ACID [Concomitant]
     Dosage: UNK

REACTIONS (3)
  - EYE INFLAMMATION [None]
  - EYE DISORDER [None]
  - PHOTOPHOBIA [None]
